FAERS Safety Report 4507570-3 (Version None)
Quarter: 2004Q4

REPORT INFORMATION
  Report Type: 
  Country: None (occurrence: None)
  Receive Date: 20041118
  Receipt Date: 20041101
  Transmission Date: 20050328
  Serious: Yes (Hospitalization)
  Sender: FDA-Public Use
  Company Number: ATO-04-0908

PATIENT
  Age: 70 Year

DRUGS (6)
  1. TRISENOX [Suspect]
     Indication: MULTIPLE MYELOMA
     Dosage: IVI
     Route: 042
  2. ASCORBIC ACID [Suspect]
     Indication: MULTIPLE MYELOMA
     Dosage: (500) IVI
     Route: 042
  3. DEXAMETHASONE [Suspect]
     Indication: MULTIPLE MYELOMA
  4. KLACID (CLARITHROMYCIN LACTOBIONATE) [Concomitant]
  5. PAMIDRONATE DISODIUM [Concomitant]
  6. PAMIDRONATE DISODIUM [Concomitant]

REACTIONS (2)
  - DYSPNOEA [None]
  - FLUID RETENTION [None]
